FAERS Safety Report 17825700 (Version 4)
Quarter: 2020Q2

REPORT INFORMATION
  Report Type: Spontaneous
  Country: AT (occurrence: AT)
  Receive Date: 20200526
  Receipt Date: 20200612
  Transmission Date: 20200714
  Serious: Yes (Hospitalization)
  Sender: FDA-Public Use
  Company Number: NVSC2020AT140386

PATIENT
  Age: 89 Year
  Sex: Female
  Weight: 68 kg

DRUGS (12)
  1. FUROSEMIDE. [Suspect]
     Active Substance: FUROSEMIDE
     Indication: PRODUCT USED FOR UNKNOWN INDICATION
     Dosage: 40 MG, QD
     Route: 065
  2. LEVOTHYROXINE. [Suspect]
     Active Substance: LEVOTHYROXINE
     Indication: HYPOTHYROIDISM
     Dosage: 125 MCG
     Route: 065
  3. ISOSORBIDE MONONITRATE. [Concomitant]
     Active Substance: ISOSORBIDE MONONITRATE
     Indication: PRODUCT USED FOR UNKNOWN INDICATION
     Dosage: 50 MG
     Route: 065
  4. ATORVASTATIN [Suspect]
     Active Substance: ATORVASTATIN
     Indication: PRODUCT USED FOR UNKNOWN INDICATION
     Dosage: 20 MG
     Route: 065
  5. DRONEDARONE [Interacting]
     Active Substance: DRONEDARONE
     Indication: PRODUCT USED FOR UNKNOWN INDICATION
     Dosage: 400 MG, Q12H
     Route: 065
  6. PRADAXA [Interacting]
     Active Substance: DABIGATRAN ETEXILATE MESYLATE
     Indication: ATRIAL FIBRILLATION
     Dosage: 220 MG
     Route: 065
     Dates: start: 201210, end: 201210
  7. LORNOXICAM [Interacting]
     Active Substance: LORNOXICAM
     Indication: BACK PAIN
     Dosage: 8 MG, Q12H
     Route: 065
  8. ALPRAZOLAM. [Suspect]
     Active Substance: ALPRAZOLAM
     Indication: PRODUCT USED FOR UNKNOWN INDICATION
     Dosage: 0.25 MG
     Route: 065
  9. MACROGOL [Concomitant]
     Active Substance: POLYETHYLENE GLYCOLS
     Indication: PRODUCT USED FOR UNKNOWN INDICATION
     Dosage: 13 G
     Route: 065
  10. PANTOPRAZOLE [Suspect]
     Active Substance: PANTOPRAZOLE
     Indication: PRODUCT USED FOR UNKNOWN INDICATION
     Dosage: 40 MG QD
     Route: 065
  11. ZOLPIDEM [Suspect]
     Active Substance: ZOLPIDEM TARTRATE
     Indication: PRODUCT USED FOR UNKNOWN INDICATION
     Dosage: 5 MG
     Route: 065
  12. NICORANDIL [Concomitant]
     Active Substance: NICORANDIL
     Indication: PRODUCT USED FOR UNKNOWN INDICATION
     Dosage: 10 MG, BID
     Route: 065

REACTIONS (16)
  - Vertigo [Unknown]
  - Dyspnoea [Unknown]
  - Diverticulum [Unknown]
  - Colitis ischaemic [Unknown]
  - Mucosal disorder [Unknown]
  - Hyponatraemia [Recovered/Resolved]
  - Gastritis erosive [Unknown]
  - Hiatus hernia [Unknown]
  - Blood loss anaemia [Unknown]
  - Ischaemic stroke [Unknown]
  - Gastrointestinal haemorrhage [Unknown]
  - Melaena [Unknown]
  - Neuromyopathy [Unknown]
  - Eyelid ptosis [Unknown]
  - Rebound effect [Unknown]
  - Drug interaction [Unknown]

NARRATIVE: CASE EVENT DATE: 201210
